FAERS Safety Report 7180299-1 (Version None)
Quarter: 2010Q4

REPORT INFORMATION
  Report Type: 
  Country: None (occurrence: None)
  Receive Date: 20101123
  Receipt Date: 20100827
  Transmission Date: 20110411
  Serious: No
  Sender: FDA-Public Use
  Company Number: 017951

PATIENT
  Sex: Female
  Weight: 49.9 kg

DRUGS (3)
  1. CIMZIA [Suspect]
     Indication: CROHN'S DISEASE
     Dosage: (2 SYRINGES SUBCUTANEOUS)
     Route: 058
     Dates: start: 20100715
  2. ENTOCORT EC [Concomitant]
  3. ESTROGEN NOS [Concomitant]

REACTIONS (2)
  - ABDOMINAL PAIN [None]
  - INJECTION SITE SWELLING [None]
